FAERS Safety Report 7313400-7 (Version None)
Quarter: 2011Q1

REPORT INFORMATION
  Report Type: 
  Country: None (occurrence: None)
  Receive Date: 20110215
  Receipt Date: 20110215
  Transmission Date: 20110831
  Serious: No
  Sender: FDA-Public Use
  Company Number: None

PATIENT
  Sex: Male
  Weight: 81.6475 kg

DRUGS (1)
  1. DETROL [Suspect]
     Indication: POLLAKIURIA
     Dates: start: 20071101, end: 20071203

REACTIONS (5)
  - EPISTAXIS [None]
  - DRY MOUTH [None]
  - NASAL DRYNESS [None]
  - PRURITUS [None]
  - NASAL DISORDER [None]
